FAERS Safety Report 8349603-2 (Version None)
Quarter: 2012Q2

REPORT INFORMATION
  Report Type: 
  Country: None (occurrence: None)
  Receive Date: 20120510
  Receipt Date: 20120502
  Transmission Date: 20120825
  Serious: Yes (Other)
  Sender: FDA-Public Use
  Company Number: US-BAYER-2012-043318

PATIENT

DRUGS (2)
  1. YAZ [Suspect]
     Dosage: UNK
     Dates: start: 20031101
  2. YASMIN [Suspect]
     Dosage: UNK
     Dates: start: 20031101

REACTIONS (1)
  - EPILEPSY [None]
